FAERS Safety Report 7463191-4 (Version None)
Quarter: 2011Q2

REPORT INFORMATION
  Report Type: 
  Country: None (occurrence: None)
  Receive Date: 20110506
  Receipt Date: 20110503
  Transmission Date: 20111010
  Serious: Yes (Hospitalization)
  Sender: FDA-Public Use
  Company Number: IT-ROCHE-755605

PATIENT
  Sex: Male
  Weight: 55 kg

DRUGS (5)
  1. COZARTAN [Concomitant]
     Dates: start: 20100101
  2. AVASTIN [Suspect]
     Dosage: DATE OF LAST DOSE: 07 DECEMBER 2010
     Route: 042
     Dates: start: 20080527, end: 20110111
  3. ATENOLOL [Concomitant]
     Dates: start: 20070101
  4. CARDIOASPIRINA [Concomitant]
     Dates: start: 20070101
  5. TAMSULOSIN HCL [Concomitant]
     Dates: start: 20070101

REACTIONS (1)
  - TUBERCULOSIS [None]
